FAERS Safety Report 18849015 (Version 4)
Quarter: 2021Q2

REPORT INFORMATION
  Report Type: Report from Study
  Country: CN (occurrence: CN)
  Receive Date: 20210204
  Receipt Date: 20210407
  Transmission Date: 20210717
  Serious: Yes (Hospitalization)
  Sender: FDA-Public Use
  Company Number: CN-DSJP-DSJ-2021-102968

PATIENT
  Age: 56 Year
  Sex: Male
  Weight: 74 kg

DRUGS (7)
  1. COMPOUND NANXING ANALGESIC [Concomitant]
     Indication: NECK PAIN
     Dosage: UNK
     Route: 050
     Dates: start: 20210208
  2. OLMESARTAN?AMLODIPINE [Suspect]
     Active Substance: AMLODIPINE BESYLATE\OLMESARTAN MEDOXOMIL
     Indication: ESSENTIAL HYPERTENSION
     Dosage: 20/5 MG, DAILY
     Route: 048
     Dates: start: 20200122
  3. SHU BANG                           /01130001/ [Concomitant]
     Indication: BENIGN PROSTATIC HYPERPLASIA
     Dosage: 5 MG, QD
     Route: 048
     Dates: start: 20210129, end: 20210210
  4. CEFIXIME. [Concomitant]
     Active Substance: CEFIXIME
     Indication: URINARY TRACT INFECTION
     Dosage: 2 G, BID
     Route: 041
     Dates: start: 20210129, end: 20210202
  5. CEFMETAZON [Concomitant]
     Active Substance: CEFMETAZOLE SODIUM
     Indication: URINARY TRACT INFECTION
     Dosage: 2 G, BID
     Route: 041
     Dates: start: 20210203, end: 20210210
  6. GLUCOPHAGE [Concomitant]
     Active Substance: METFORMIN HYDROCHLORIDE
     Indication: TYPE 2 DIABETES MELLITUS
     Dosage: 0.5 G, QD
     Route: 048
     Dates: start: 20201104
  7. HARNAL [Concomitant]
     Active Substance: TAMSULOSIN HYDROCHLORIDE
     Indication: BENIGN PROSTATIC HYPERPLASIA
     Dosage: 0.4 G, QD
     Route: 048
     Dates: start: 202009

REACTIONS (12)
  - White blood cells urine positive [Recovered/Resolved]
  - Microalbuminuria [Recovering/Resolving]
  - Urinary tract infection [Recovered/Resolved]
  - Urinary occult blood positive [Recovering/Resolving]
  - Red blood cells urine positive [Recovering/Resolving]
  - Glucose urine present [Unknown]
  - Blood creatinine increased [Recovered/Resolved]
  - Proteinuria [Recovered/Resolved]
  - Urobilinogen faeces abnormal [Recovered/Resolved]
  - Hyperuricaemia [Not Recovered/Not Resolved]
  - Creatinine urine abnormal [Recovered/Resolved]
  - Procalcitonin abnormal [Recovering/Resolving]

NARRATIVE: CASE EVENT DATE: 20210129
